FAERS Safety Report 4542444-3 (Version None)
Quarter: 2004Q4

REPORT INFORMATION
  Report Type: 
  Country: None (occurrence: None)
  Receive Date: 20041229
  Receipt Date: 20041220
  Transmission Date: 20050328
  Serious: Yes (Life-Threatening, Other)
  Sender: FDA-Public Use
  Company Number: 200316303BWH

PATIENT
  Age: 67 Year
  Sex: Female
  Weight: 60 kg

DRUGS (12)
  1. AVELOX [Suspect]
     Indication: LEUKOCYTOSIS
     Dosage: 400 MG, TOTAL DAILY, INTRAVENOUS
     Route: 042
     Dates: start: 20021004
  2. AVELOX [Suspect]
     Indication: PNEUMONIA
     Dosage: 400 MG, TOTAL DAILY, INTRAVENOUS
     Route: 042
     Dates: start: 20021004
  3. ASPIRIN [Concomitant]
  4. CAPTOPRIL [Concomitant]
  5. DIGOXIN [Concomitant]
  6. METOPROLOL [Concomitant]
  7. DILTIAZEM [Concomitant]
  8. METRONIDAZOLE [Concomitant]
  9. PRAVASTATIN SODIUM [Concomitant]
  10. POTASSIUM [Concomitant]
  11. HEPARIN [Concomitant]
  12. FUROSEMIDE [Concomitant]

REACTIONS (6)
  - BLOOD MAGNESIUM DECREASED [None]
  - CARDIAC ARREST [None]
  - COMA [None]
  - ELECTROCARDIOGRAM QT PROLONGED [None]
  - TORSADE DE POINTES [None]
  - VENTRICULAR TACHYCARDIA [None]
